FAERS Safety Report 14729792 (Version 10)
Quarter: 2019Q2

REPORT INFORMATION
  Report Type: Report from Study
  Country: US (occurrence: US)
  Receive Date: 20180406
  Receipt Date: 20190604
  Transmission Date: 20190711
  Serious: Yes (Death, Hospitalization)
  Sender: FDA-Public Use
  Company Number: US-ACTELION-A-NJ2017-161634

PATIENT
  Age: 35 Year
  Sex: Female
  Weight: 73.47 kg

DRUGS (11)
  1. LETAIRIS [Concomitant]
     Active Substance: AMBRISENTAN
  2. MIDODRINE [Concomitant]
     Active Substance: MIDODRINE
  3. VELETRI [Suspect]
     Active Substance: EPOPROSTENOL
     Dosage: 9 NG/KG, PER MIN
     Route: 042
  4. VELETRI [Suspect]
     Active Substance: EPOPROSTENOL
     Indication: PULMONARY ARTERIAL HYPERTENSION
     Dosage: 13.5 NG/KG, PER MIN
     Route: 042
  5. SPIRONOLACTONE. [Concomitant]
     Active Substance: SPIRONOLACTONE
  6. VELETRI [Suspect]
     Active Substance: EPOPROSTENOL
     Dosage: 40 NG/KG
     Route: 042
  7. VELETRI [Suspect]
     Active Substance: EPOPROSTENOL
     Dosage: 20 NG/KG, PER MIN
     Route: 042
  8. VELETRI [Suspect]
     Active Substance: EPOPROSTENOL
     Dosage: 30 NG/KG, PER MIN
     Route: 042
  9. LASIX [Concomitant]
     Active Substance: FUROSEMIDE
  10. SILDENAFIL. [Concomitant]
     Active Substance: SILDENAFIL
  11. TORSEMIDE. [Concomitant]
     Active Substance: TORSEMIDE

REACTIONS (20)
  - Pulmonary arterial hypertension [Unknown]
  - Vomiting [Unknown]
  - Influenza like illness [Unknown]
  - Heart rate increased [Unknown]
  - Fluid retention [Unknown]
  - Swelling [Unknown]
  - Disease progression [Fatal]
  - Hypervolaemia [Unknown]
  - Dyspnoea [Unknown]
  - Right ventricular failure [Fatal]
  - Supraventricular tachycardia [Unknown]
  - Oedema [Unknown]
  - Headache [Unknown]
  - Palpitations [Unknown]
  - Abdominal pain [Unknown]
  - N-terminal prohormone brain natriuretic peptide increased [Unknown]
  - Flushing [Unknown]
  - Ascites [Unknown]
  - Nausea [Unknown]
  - Diarrhoea [Unknown]

NARRATIVE: CASE EVENT DATE: 20190503
